FAERS Safety Report 10149058 (Version 1)
Quarter: 2014Q2

REPORT INFORMATION
  Report Type: Spontaneous
  Country: JP (occurrence: None)
  Receive Date: 20140430
  Receipt Date: 20140430
  Transmission Date: 20141212
  Serious: Yes (Hospitalization)
  Sender: FDA-Public Use
  Company Number: FK201401503

PATIENT
  Age: 15 Year
  Sex: Male

DRUGS (4)
  1. ETOPOSIDE [Suspect]
     Indication: GERM CELL CANCER
  2. CARBOPLATIN [Suspect]
     Indication: GERM CELL CANCER
     Dosage: AUC 7
  3. IFOSFAMIDE (IFOSFAMIDE) [Concomitant]
  4. PACLITAXEL (PACLITAXEL) [Concomitant]

REACTIONS (2)
  - Renal impairment [None]
  - Hearing impaired [None]
